FAERS Safety Report 17590701 (Version 1)
Quarter: 2020Q1

REPORT INFORMATION
  Report Type: Spontaneous
  Country: US (occurrence: US)
  Receive Date: 20200325
  Receipt Date: 20200325
  Transmission Date: 20200409
  Serious: Yes (Hospitalization)
  Sender: FDA-Public Use
  Company Number: None

PATIENT
  Age: 70 Year
  Sex: Female

DRUGS (28)
  1. TEMAZEPAM. [Concomitant]
     Active Substance: TEMAZEPAM
  2. VITAMIN D3 [Concomitant]
     Active Substance: CHOLECALCIFEROL
  3. ALBUTEROL NEB SOLN, 0.083% [Concomitant]
     Active Substance: ALBUTEROL
  4. FUROSEMIDE. [Concomitant]
     Active Substance: FUROSEMIDE
  5. ONDANSETRON [Concomitant]
     Active Substance: ONDANSETRON
  6. ATORVASTATIN [Concomitant]
     Active Substance: ATORVASTATIN
  7. FERROUS SULFATE. [Concomitant]
     Active Substance: FERROUS SULFATE
  8. MAGNESIUM OXIDE. [Concomitant]
     Active Substance: MAGNESIUM OXIDE
  9. ASPIRIN. [Concomitant]
     Active Substance: ASPIRIN
  10. SPIRIVA RESPIMAT [Concomitant]
     Active Substance: TIOTROPIUM BROMIDE
  11. METOLAZONE. [Concomitant]
     Active Substance: METOLAZONE
  12. FLONASE [Concomitant]
     Active Substance: FLUTICASONE PROPIONATE
  13. VITAMIN B COMPLEX- VIT C [Concomitant]
  14. CODEINE-GUAIFENESIN [Concomitant]
     Active Substance: CODEINE PHOSPHATE\GUAIFENESIN
  15. PROCHLORPERAZINE. [Concomitant]
     Active Substance: PROCHLORPERAZINE
  16. CLOPIDOGREL [Concomitant]
     Active Substance: CLOPIDOGREL BISULFATE
  17. OPSUMIT [Suspect]
     Active Substance: MACITENTAN
     Indication: PULMONARY ARTERIAL HYPERTENSION
     Route: 048
     Dates: start: 201901
  18. ALLOPURINOL. [Concomitant]
     Active Substance: ALLOPURINOL
  19. ALVESCO HFA [Concomitant]
  20. GLIPIZIDE. [Concomitant]
     Active Substance: GLIPIZIDE
  21. NARCAN [Concomitant]
     Active Substance: NALOXONE HYDROCHLORIDE
  22. FENTANYL. [Concomitant]
     Active Substance: FENTANYL
  23. HYDROMORPHINE [Concomitant]
     Active Substance: HYDROMORPHONE
  24. MURTAZAPINE [Concomitant]
  25. BENZONATATE. [Concomitant]
     Active Substance: BENZONATATE
  26. DECLOFENAC TOP GEL [Concomitant]
  27. ALBUTEROL  HFA [Concomitant]
     Active Substance: ALBUTEROL SULFATE
  28. POTASSIUM CHLORIDE. [Concomitant]
     Active Substance: POTASSIUM CHLORIDE

REACTIONS (6)
  - Respiratory failure [None]
  - Atrial fibrillation [None]
  - Pancytopenia [None]
  - Hypotension [None]
  - General physical health deterioration [None]
  - Hospice care [None]

NARRATIVE: CASE EVENT DATE: 20200306
